FAERS Safety Report 22218310 (Version 1)
Quarter: 2023Q2

REPORT INFORMATION
  Report Type: Spontaneous
  Country: None (occurrence: FR)
  Receive Date: 20230417
  Receipt Date: 20230417
  Transmission Date: 20230722
  Serious: Yes (Life-Threatening, Other)
  Sender: FDA-Public Use
  Company Number: FR-B.Braun Medical Inc.-2140449

PATIENT
  Age: 62 Year
  Sex: Male
  Weight: 72 kg

DRUGS (9)
  1. MAGNESIUM SULFATE IN DEXTROSE [Suspect]
     Active Substance: MAGNESIUM SULFATE
     Indication: Prophylaxis
     Route: 042
  2. ATROPINE [Suspect]
     Active Substance: ATROPINE
  3. CALCIUM GLUCONATE [Suspect]
     Active Substance: CALCIUM GLUCONATE
  4. LEUCOVORIN CALCIUM [Suspect]
     Active Substance: LEUCOVORIN CALCIUM
  5. ONDANSETRON [Suspect]
     Active Substance: ONDANSETRON
  6. METHYLPREDNISOLONE [Suspect]
     Active Substance: METHYLPREDNISOLONE
  7. IRINOTECAN [Suspect]
     Active Substance: IRINOTECAN
  8. OXALIPLATIN [Suspect]
     Active Substance: OXALIPLATIN
  9. FLUOROURACIL [Suspect]
     Active Substance: FLUOROURACIL

REACTIONS (2)
  - Thrombocytopenia [Recovered/Resolved]
  - Off label use [Recovered/Resolved]
